FAERS Safety Report 7943138-4 (Version None)
Quarter: 2011Q4

REPORT INFORMATION
  Report Type: 
  Country: None (occurrence: None)
  Receive Date: 20111128
  Receipt Date: 20111115
  Transmission Date: 20120403
  Serious: Yes (Other)
  Sender: FDA-Public Use
  Company Number: PHHY2011US14325

PATIENT
  Sex: Male
  Weight: 106.58 kg

DRUGS (2)
  1. SANDOSTATIN LAR [Suspect]
     Dosage: 30 MG, TIW
     Dates: start: 20080822
  2. SANDOSTATIN LAR [Suspect]
     Dosage: 6 VIALS EVERY 90 DAYS

REACTIONS (13)
  - GAIT DISTURBANCE [None]
  - MICROCYTOSIS [None]
  - ANAEMIA [None]
  - MUSCULAR WEAKNESS [None]
  - ABDOMINAL NEOPLASM [None]
  - HAEMOGLOBIN DECREASED [None]
  - BLOOD CHROMOGRANIN A INCREASED [None]
  - NECK PAIN [None]
  - BLOOD PRESSURE INCREASED [None]
  - PAIN IN EXTREMITY [None]
  - BLOOD IRON DECREASED [None]
  - DISEASE PROGRESSION [None]
  - SERUM SEROTONIN INCREASED [None]
